FAERS Safety Report 6564859-4 (Version None)
Quarter: 2010Q1

REPORT INFORMATION
  Report Type: 
  Country: None (occurrence: None)
  Receive Date: 20100201
  Receipt Date: 20100119
  Transmission Date: 20100710
  Serious: Yes (Hospitalization)
  Sender: FDA-Public Use
  Company Number: BE-PFIZER INC-2009287432

PATIENT
  Age: 46 Year
  Sex: Male
  Weight: 48 kg

DRUGS (6)
  1. SUNITINIB MALATE [Suspect]
     Indication: HEAD AND NECK CANCER
     Dosage: 37.5 MG, 1X/DAY
     Route: 048
     Dates: start: 20090921
  2. MEDROL [Concomitant]
     Indication: PAIN
     Dosage: 32 MG, 1X/DAY
     Route: 048
     Dates: start: 20091005
  3. DAFALGAN [Concomitant]
     Indication: PAIN
     Dosage: 2 G, 1X/DAY
     Route: 048
     Dates: start: 20090817
  4. TRADONAL [Concomitant]
     Indication: PAIN
     Dosage: 100 MG, 1X/DAY
     Route: 048
     Dates: start: 20091005
  5. PRAZEPAM [Concomitant]
     Indication: ANXIETY
     Dosage: 10 GTT, 1X/DAY
     Route: 048
     Dates: start: 20091005
  6. ZANTAC [Concomitant]
     Indication: PROPHYLAXIS
     Dosage: 300 MG, 1X/DAY
     Route: 048
     Dates: start: 20091005

REACTIONS (2)
  - SEPTIC SHOCK [None]
  - TUMOUR HAEMORRHAGE [None]
